FAERS Safety Report 10714979 (Version 1)
Quarter: 2015Q1

REPORT INFORMATION
  Report Type: Spontaneous
  Country: FR (occurrence: FR)
  Receive Date: 20150115
  Receipt Date: 20150115
  Transmission Date: 20150721
  Serious: Yes (Hospitalization)
  Sender: FDA-Public Use
  Company Number: FR-ASTRAZENECA-2015SE03446

PATIENT
  Age: 0 Day
  Sex: Male
  Weight: 3 kg

DRUGS (3)
  1. XEROQUEL [Suspect]
     Active Substance: QUETIAPINE FUMARATE
     Indication: BIPOLAR DISORDER
     Route: 064
  2. XEROQUEL [Suspect]
     Active Substance: QUETIAPINE FUMARATE
     Indication: BIPOLAR DISORDER
     Route: 064
  3. XANAX [Suspect]
     Active Substance: ALPRAZOLAM
     Route: 064

REACTIONS (10)
  - Neonatal hypoxia [Unknown]
  - Somnolence [Unknown]
  - Malaise [Recovered/Resolved]
  - Hypotonia [Recovered/Resolved]
  - Sedation [Recovered/Resolved]
  - Poor sucking reflex [Recovered/Resolved]
  - Feeding disorder neonatal [Recovered/Resolved]
  - Foetal macrosomia [Unknown]
  - Foetal arrhythmia [Unknown]
  - Cardiac septal hypertrophy [Unknown]

NARRATIVE: CASE EVENT DATE: 20140905
